FAERS Safety Report 9273882 (Version 2)
Quarter: 2013Q2

REPORT INFORMATION
  Report Type: Spontaneous
  Country: US (occurrence: US)
  Receive Date: 20130506
  Receipt Date: 20130604
  Transmission Date: 20140414
  Serious: No
  Sender: FDA-Public Use
  Company Number: US-AMGEN-USASP2013026548

PATIENT
  Age: 44 Year
  Sex: Female
  Weight: 136.5 kg

DRUGS (25)
  1. ENBREL [Suspect]
     Indication: RHEUMATOID ARTHRITIS
     Dosage: 50 MG, QWK
     Route: 058
     Dates: start: 20100315
  2. ADVAIR [Concomitant]
     Indication: ASTHMA
     Dosage: 250/50 QD
     Route: 048
  3. FOLIC ACID [Concomitant]
     Indication: RHEUMATOID ARTHRITIS
     Dosage: 1 MG, BID
     Route: 048
  4. VICODIN [Concomitant]
     Indication: PAIN
     Dosage: 7.5/750, Q6H
     Route: 048
  5. PLAQUENIL                          /00072602/ [Concomitant]
     Indication: RHEUMATOID ARTHRITIS
     Dosage: 200 UNK, BID
     Route: 048
  6. LISINOPRIL [Concomitant]
     Indication: HYPERTENSION
     Dosage: 10 MG, QD
     Route: 048
  7. PROAIR HFA [Concomitant]
     Dosage: 2 PUFF FOUR TIMES DAILY
  8. VIVELLE DOT [Concomitant]
     Dosage: 0.1 MG/24 HRS, 2 TIMES/WK
     Route: 062
  9. CARISOPRODOL [Concomitant]
     Indication: ARTHRALGIA
     Dosage: 350 MG, 1 TAB AT BEDTIME AS NEEDED
     Route: 048
     Dates: start: 20110729
  10. TRAMADOL HCL [Concomitant]
     Indication: ARTHRALGIA
     Dosage: 50 MG, 1 TO 2 TAB EVERY 6 HRS AS NEEDED.
     Route: 048
     Dates: start: 20110729
  11. HYDROCODONE/ACETAMINOPHEN          /00607101/ [Concomitant]
     Indication: ARTHRALGIA
     Dosage: 7.5/750 MG EVERY 6 HOURS AS NEEDED.
     Route: 048
  12. HYDROCODONE/ACETAMINOPHEN          /00607101/ [Concomitant]
     Indication: MYALGIA
  13. HYDROCODONE/ACETAMINOPHEN          /00607101/ [Concomitant]
     Indication: MYOSITIS
  14. HYDROCODONE/ACETAMINOPHEN          /00607101/ [Concomitant]
     Indication: OSTEOARTHRITIS
  15. HYDROCODONE/ACETAMINOPHEN          /00607101/ [Concomitant]
     Indication: RHEUMATOID ARTHRITIS
  16. FLOVENT HFA [Concomitant]
     Indication: ASTHMA
     Dosage: 110 MUG/ACT, 1 PUFF  BID
     Dates: start: 20121025
  17. OMEPRAZOLE [Concomitant]
     Indication: GASTRITIS
     Dosage: 20 MG, QD
     Route: 048
  18. CALCIUM 600 [Concomitant]
     Dosage: 2 DF, QD
  19. VITAMIN B12                        /00056201/ [Concomitant]
     Dosage: 500 MUG, QD
     Route: 048
  20. VITAMIN D3 [Concomitant]
     Dosage: 1000 UNIT,  2 CAPSULES DAILY
     Route: 048
  21. TRIAMTERENE AND HYDROCHLOROTHIAZID [Concomitant]
     Indication: HYPERTENSION
     Dosage: 37.5-25 MG, 1 TAB DAILY
     Route: 048
  22. VOLTAREN                           /00372301/ [Concomitant]
     Indication: OSTEOARTHRITIS
     Dosage: 1%, GEL
  23. LIDODERM [Concomitant]
     Indication: NEUROPATHY PERIPHERAL
     Dosage: 5%, EXTERNAL PATCH, APPLY IN PLACE FOR 12 HRS AND THEN LEAVE OFF FOR 12 HRS
     Dates: start: 20120821
  24. HYDROXYCHLOROQUINE SULFATE [Concomitant]
     Indication: RHEUMATOID ARTHRITIS
     Dosage: 200 MG, 1 TAB BID
     Route: 048
     Dates: start: 20121101
  25. METHOTREXATE [Concomitant]
     Indication: RHEUMATOID ARTHRITIS
     Dosage: 2.5 MG, SEVEN TAB ONCE A WEEK
     Route: 048

REACTIONS (10)
  - Bloody discharge [Not Recovered/Not Resolved]
  - Furuncle [Not Recovered/Not Resolved]
  - Arthralgia [Unknown]
  - Myalgia [Unknown]
  - Myositis [Unknown]
  - Osteoarthritis [Unknown]
  - Asthma [Unknown]
  - Gastritis [Unknown]
  - Hypertension [Unknown]
  - Neuropathy peripheral [Unknown]
